FAERS Safety Report 5094942-4 (Version None)
Quarter: 2006Q3

REPORT INFORMATION
  Report Type: 
  Country: None (occurrence: None)
  Receive Date: 20060901
  Receipt Date: 20060824
  Transmission Date: 20061208
  Serious: Yes (Hospitalization)
  Sender: FDA-Public Use
  Company Number: CH-JNJFOC-20060601970

PATIENT
  Age: 8 Decade
  Sex: Female

DRUGS (6)
  1. RISPERDAL [Suspect]
     Indication: DRUG USE FOR UNKNOWN INDICATION
     Route: 048
  2. ZURCAL [Concomitant]
     Route: 048
  3. BEPANTHEN [Concomitant]
  4. NEOSPORIN [Concomitant]
  5. ARIPIPRAZOLE [Concomitant]
     Route: 048
  6. ARIPIPRAZOLE [Concomitant]
     Dosage: 10-15MG
     Route: 048

REACTIONS (2)
  - DIZZINESS [None]
  - FALL [None]
